FAERS Safety Report 6311520-7 (Version None)
Quarter: 2009Q3

REPORT INFORMATION
  Report Type: 
  Country: None (occurrence: None)
  Receive Date: 20090817
  Receipt Date: 20090810
  Transmission Date: 20100115
  Serious: Yes (Death, Other)
  Sender: FDA-Public Use
  Company Number: PHEH2009US08476

PATIENT
  Sex: Male
  Weight: 72.7 kg

DRUGS (27)
  1. AFINITOR [Suspect]
     Indication: RENAL CELL CARCINOMA
     Dosage: 10 MG, QD
     Route: 048
     Dates: start: 20090627, end: 20090710
  2. AFINITOR [Suspect]
     Dosage: NO TREATMENT
  3. AFINITOR [Suspect]
     Dosage: 10 MG, QD
     Route: 048
     Dates: start: 20090713, end: 20090716
  4. RADIATION THERAPY [Concomitant]
  5. AVASTIN [Concomitant]
     Indication: RENAL CANCER
     Dosage: 1170 MG, UNK
     Route: 042
     Dates: start: 20090403, end: 20090626
  6. ZOMETA [Concomitant]
     Indication: METASTASES TO BONE
     Dosage: 4 MG, UNK
     Route: 042
     Dates: start: 20090403, end: 20090626
  7. MAGNESIUM OXIDE [Concomitant]
     Dosage: 800 MG, UNK
     Route: 048
  8. LOPRESSOR [Concomitant]
     Dosage: 50 MG, BID
     Route: 048
  9. MS CONTIN [Concomitant]
     Dosage: 120MG AM, 90MG NOON, 90MG PM
     Route: 048
  10. NEUTRA-PHOS [Concomitant]
     Dosage: UNK
     Route: 048
  11. PRILOSEC [Concomitant]
     Dosage: 20 MG, QD
     Route: 048
  12. K-DUR [Concomitant]
     Dosage: 20 MEQ, QD
     Route: 048
  13. ALTACE [Concomitant]
     Dosage: 5 MG, QD
     Route: 048
  14. SENOKOT                                 /USA/ [Concomitant]
     Dosage: TWO TABS, HS
     Route: 048
  15. COLACE [Concomitant]
     Dosage: ONE CAP, TID
     Route: 048
  16. FEOSOL [Concomitant]
     Dosage: 325 MG, QD
     Route: 048
  17. LASIX [Concomitant]
     Dosage: 20 MG, QD
     Route: 048
  18. LANTUS [Concomitant]
     Dosage: 10 U, QD
     Route: 058
  19. HUMALOG [Concomitant]
     Dosage: UNK, AC AND HS
     Route: 058
  20. NOVOLOG [Concomitant]
     Dosage: UNK, AC AND HS
     Route: 058
  21. ZOCOR [Concomitant]
     Dosage: 40 MG, QHS
     Route: 048
  22. FLOMAX [Concomitant]
     Dosage: 0.4 MG, QHS
     Route: 048
  23. COUMADIN [Concomitant]
     Dosage: 1.5 MG, QD
     Route: 048
  24. MORPHINE SULFATE [Concomitant]
     Dosage: 90 MG, Q3H PRN
     Route: 048
  25. PROCTOFOAM HC [Concomitant]
     Dosage: UNK
  26. MIRALAX [Concomitant]
     Dosage: UNK
  27. FLEXERIL [Concomitant]
     Dosage: 10 MG, Q8H
     Route: 048

REACTIONS (11)
  - ABDOMINAL DISCOMFORT [None]
  - BLOOD PRESSURE IMMEASURABLE [None]
  - DIARRHOEA [None]
  - GASTROINTESTINAL HAEMORRHAGE [None]
  - HAEMATEMESIS [None]
  - NAUSEA [None]
  - PROTHROMBIN TIME PROLONGED [None]
  - PULSE ABSENT [None]
  - PUPIL FIXED [None]
  - UNRESPONSIVE TO STIMULI [None]
  - VOMITING [None]
